FAERS Safety Report 7491863-4 (Version None)
Quarter: 2011Q2

REPORT INFORMATION
  Report Type: 
  Country: None (occurrence: None)
  Receive Date: 20110519
  Receipt Date: 20110510
  Transmission Date: 20111010
  Serious: Yes (Hospitalization)
  Sender: FDA-Public Use
  Company Number: FR-ROCHE-776801

PATIENT
  Sex: Female

DRUGS (3)
  1. RIBAVIRIN [Suspect]
     Route: 048
     Dates: start: 20110211, end: 20110217
  2. PEGINTERFERON ALFA-2A [Suspect]
     Dosage: FREQUENCY: WEEK.
     Route: 058
     Dates: start: 20110211, end: 20110509
  3. RIBAVIRIN [Suspect]
     Route: 048
     Dates: start: 20110218, end: 20110509

REACTIONS (1)
  - VIITH NERVE PARALYSIS [None]
